FAERS Safety Report 7602525 (Version 3)
Quarter: 2014Q1

REPORT INFORMATION
  Report Type: Spontaneous
  Country: US (occurrence: US)
  Receive Date: 20100923
  Receipt Date: 20140206
  Transmission Date: 20141002
  Serious: Yes (Hospitalization, Other)
  Sender: FDA-Public Use
  Company Number: US-BAYER-201034250NA

PATIENT
  Age: 51 Year
  Sex: Female
  Weight: 64.85 kg

DRUGS (14)
  1. YASMIN [Suspect]
     Indication: PREMENSTRUAL SYNDROME
     Dosage: UNK
     Route: 048
     Dates: start: 2003, end: 2006
  2. EFFEXOR XR [Concomitant]
     Indication: DEPRESSION
     Dosage: UNK
  3. BUSPAR [Concomitant]
     Indication: ANXIETY
     Dosage: UNK
  4. AMBIEN [Concomitant]
     Indication: SLEEP DISORDER
     Dosage: UNK
  5. PROTONIX [Concomitant]
     Dosage: UNK
  6. TRAZODONE [Concomitant]
     Indication: DEPRESSION
     Dosage: UNK
  7. LORAZEPAM [Concomitant]
     Indication: ANXIETY
     Dosage: UNK
  8. HYOSCYAMINE [Concomitant]
     Dosage: UNK
  9. LEXAPRO [Concomitant]
     Dosage: UNK
     Dates: start: 20060127
  10. AVELOX [Concomitant]
     Dosage: 400 MG, UNK
     Dates: start: 20051121
  11. CEPHALEXIN [Concomitant]
     Dosage: 250 MG, UNK
     Dates: start: 20051110
  12. PROPOXYPHENE HCL AND ACETAMINOPHEN [Concomitant]
     Dosage: 100/650
     Dates: start: 20051110
  13. KEFLEX [Concomitant]
     Indication: PAIN
  14. DARVOCET-N [Concomitant]
     Indication: PAIN

REACTIONS (7)
  - Gallbladder disorder [None]
  - Cholecystitis chronic [None]
  - Gallbladder cholesterolosis [None]
  - Biliary dyskinesia [None]
  - Pulmonary embolism [Unknown]
  - Deep vein thrombosis [Unknown]
  - Off label use [None]
